FAERS Safety Report 15824433 (Version 1)
Quarter: 2019Q1

REPORT INFORMATION
  Report Type: Spontaneous
  Country: US (occurrence: US)
  Receive Date: 20190115
  Receipt Date: 20190115
  Transmission Date: 20190417
  Serious: No
  Sender: FDA-Public Use
  Company Number: US-TEVA-2018-US-990862

PATIENT
  Age: 77 Year
  Sex: Male

DRUGS (1)
  1. TEVA CLONIDINE TDS [Suspect]
     Active Substance: CLONIDINE
     Indication: HYPERTENSION
     Route: 065

REACTIONS (2)
  - Dermatitis contact [Unknown]
  - Rash [Unknown]
